FAERS Safety Report 5419220-2 (Version None)
Quarter: 2007Q3

REPORT INFORMATION
  Report Type: 
  Country: None (occurrence: None)
  Receive Date: 20070815
  Receipt Date: 20070802
  Transmission Date: 20080115
  Serious: Yes (Death)
  Sender: FDA-Public Use
  Company Number: 5736/ 2007S1007257

PATIENT
  Age: 5 Year
  Sex: Female

DRUGS (2)
  1. AMNESTEEM [Suspect]
  2. CLARAVIS [Suspect]

REACTIONS (1)
  - DEATH [None]
